FAERS Safety Report 4437774-X (Version None)
Quarter: 2004Q3

REPORT INFORMATION
  Report Type: 
  Country: None (occurrence: None)
  Receive Date: 20040728
  Receipt Date: 20040316
  Transmission Date: 20050211
  Serious: No
  Sender: FDA-Public Use
  Company Number: USA040362234

PATIENT
  Age: 30 Year
  Sex: Male

DRUGS (2)
  1. STRATTERA [Suspect]
     Indication: ATTENTION DEFICIT/HYPERACTIVITY DISORDER
     Dosage: 60 MG DAY
     Dates: start: 20031125
  2. PAROXETINE HYDROCHLORIDE [Concomitant]

REACTIONS (2)
  - TESTICULAR PAIN [None]
  - URETHRAL DISCHARGE [None]
